FAERS Safety Report 21381812 (Version 2)
Quarter: 2022Q4

REPORT INFORMATION
  Report Type: Spontaneous
  Country: RU (occurrence: RU)
  Receive Date: 20220927
  Receipt Date: 20221010
  Transmission Date: 20230113
  Serious: Yes (Hospitalization, Other)
  Sender: FDA-Public Use
  Company Number: RU-NOVARTISPH-NVSC2022RU217007

PATIENT
  Age: 56 Year
  Sex: Female
  Weight: 92 kg

DRUGS (2)
  1. CEFTRIAXONE [Suspect]
     Active Substance: CEFTRIAXONE
     Indication: Bronchitis
     Dosage: 1 G IN 3.5 ML, BID
     Route: 030
     Dates: start: 20210924
  2. LIDOCAINE [Suspect]
     Active Substance: LIDOCAINE
     Indication: Bronchitis
     Dosage: UNK, BID, 3.5 ML SOLUTION
     Route: 030
     Dates: start: 20210924

REACTIONS (1)
  - Kounis syndrome [Recovered/Resolved]

NARRATIVE: CASE EVENT DATE: 20210924
